FAERS Safety Report 9895765 (Version 2)
Quarter: 2014Q2

REPORT INFORMATION
  Report Type: Spontaneous
  Country: US (occurrence: US)
  Receive Date: 20140213
  Receipt Date: 20140618
  Transmission Date: 20141212
  Serious: Yes (Hospitalization)
  Sender: FDA-Public Use
  Company Number: US-BRISTOL-MYERS SQUIBB COMPANY-19448273

PATIENT
  Age: 54 Year
  Sex: Female
  Weight: 75.73 kg

DRUGS (15)
  1. ABATACEPT SUBQ INJECTION 125MG/ML [Suspect]
     Indication: RHEUMATOID ARTHRITIS
     Dosage: 4 PACKS?EXP:NOV-2015
     Route: 058
  2. CYMBALTA [Concomitant]
     Dosage: CAPS
  3. KLONOPIN [Concomitant]
  4. PROTONIX [Concomitant]
  5. LASIX [Concomitant]
  6. FENTANYL [Concomitant]
  7. GLIMEPIRIDE [Concomitant]
     Dosage: TAB
  8. ESTRADIOL [Concomitant]
  9. PLAVIX TABS [Concomitant]
  10. BYSTOLIC [Concomitant]
  11. POTASSIUM [Concomitant]
  12. FOLIC ACID [Concomitant]
     Dosage: TAB
  13. FENOFIBRATE [Concomitant]
     Dosage: TAB
  14. BYDUREON [Concomitant]
  15. LANTUS [Concomitant]
     Dosage: 1DF-46 UNITS

REACTIONS (7)
  - Cardiac disorder [Unknown]
  - Lymphadenopathy [Unknown]
  - Dysphagia [Unknown]
  - Pyrexia [Unknown]
  - Abdominal pain upper [Unknown]
  - Weight decreased [Unknown]
  - Rheumatoid arthritis [Unknown]
